FAERS Safety Report 4385319-5 (Version None)
Quarter: 2004Q2

REPORT INFORMATION
  Report Type: 
  Country: None (occurrence: None)
  Receive Date: 20040624
  Receipt Date: 20040624
  Transmission Date: 20050107
  Serious: Yes (Hospitalization)
  Sender: FDA-Public Use
  Company Number: None

PATIENT
  Age: 19 Hour
  Sex: Female
  Weight: 32.85 kg

DRUGS (3)
  1. ZOFRAN [Suspect]
     Indication: NAUSEA
     Dosage: 4 MG BID
     Dates: start: 20031001, end: 20040416
  2. ZANTAC [Concomitant]
  3. PRENATAL VITAMINS [Concomitant]

REACTIONS (4)
  - DRUG WITHDRAWAL SYNDROME NEONATAL [None]
  - NEONATAL APNOEIC ATTACK [None]
  - NEONATAL DISORDER [None]
  - NYSTAGMUS [None]
